FAERS Safety Report 5515929-0 (Version None)
Quarter: 2007Q4

REPORT INFORMATION
  Report Type: 
  Country: None (occurrence: None)
  Receive Date: 20071114
  Receipt Date: 20071110
  Transmission Date: 20080405
  Serious: Yes (Life-Threatening)
  Sender: FDA-Public Use
  Company Number: PHBS2007VE18801

PATIENT
  Age: 1 Year
  Sex: Female

DRUGS (1)
  1. CATAFLAM [Suspect]
     Indication: OEDEMA
     Dosage: 3 CC, Q8H

REACTIONS (2)
  - CYANOSIS [None]
  - DYSPNOEA [None]
